FAERS Safety Report 8103431-1 (Version None)
Quarter: 2012Q1

REPORT INFORMATION
  Report Type: 
  Country: None (occurrence: None)
  Receive Date: 20120201
  Receipt Date: 20120126
  Transmission Date: 20120608
  Serious: Yes (Hospitalization, Disabling, Other)
  Sender: FDA-Public Use
  Company Number: US-PFIZER INC-2012023096

PATIENT
  Sex: Female
  Weight: 63.492 kg

DRUGS (7)
  1. ALBUTEROL [Concomitant]
     Dosage: UNK
  2. XANAX [Suspect]
     Indication: DEPRESSION
     Dosage: 50 MG, 2X/DAY
     Dates: start: 20080101, end: 20100126
  3. EFFEXOR XR [Suspect]
     Indication: ANXIETY
     Dosage: 75 MG, DAILY
     Dates: end: 20120101
  4. EFFEXOR XR [Suspect]
     Indication: DEPRESSION
     Dosage: 37 MG, DAILY
     Dates: end: 20120101
  5. SPIRIVA [Suspect]
     Indication: EMPHYSEMA
     Dosage: UNK, DAILY
     Dates: start: 20080101, end: 20100101
  6. XANAX [Suspect]
     Indication: ANXIETY
  7. SPIRIVA [Suspect]
     Indication: CHRONIC OBSTRUCTIVE PULMONARY DISEASE

REACTIONS (5)
  - THROAT CANCER [None]
  - APPARENT DEATH [None]
  - DYSPNOEA [None]
  - GASTRIC DISORDER [None]
  - DYSPHAGIA [None]
